FAERS Safety Report 8098204-2 (Version None)
Quarter: 2012Q1

REPORT INFORMATION
  Report Type: 
  Country: None (occurrence: None)
  Receive Date: 20120128
  Receipt Date: 20110810
  Transmission Date: 20120608
  Serious: No
  Sender: FDA-Public Use
  Company Number: US-ABBOTT-11P-163-0845188-00

PATIENT
  Sex: Female
  Weight: 103.06 kg

DRUGS (3)
  1. NAPROSYN [Concomitant]
     Indication: INFLAMMATORY PAIN
  2. HUMIRA [Suspect]
     Indication: PSORIATIC ARTHROPATHY
     Dates: start: 20110701
  3. HUMIRA [Suspect]
     Indication: PSORIASIS
     Dates: start: 20090101, end: 20110701

REACTIONS (8)
  - OSTEOPOROSIS [None]
  - MUSCULOSKELETAL DISORDER [None]
  - MUSCULOSKELETAL PAIN [None]
  - PSORIATIC ARTHROPATHY [None]
  - PSORIASIS [None]
  - ROTATOR CUFF SYNDROME [None]
  - HYPERTENSION [None]
  - DRUG DOSE OMISSION [None]
